FAERS Safety Report 9366208 (Version 2)
Quarter: 2013Q3

REPORT INFORMATION
  Report Type: Spontaneous
  Country: US (occurrence: US)
  Receive Date: 20130625
  Receipt Date: 20130814
  Transmission Date: 20140515
  Serious: Yes (Death, Hospitalization, Other)
  Sender: FDA-Public Use
  Company Number: US-ASTELLAS-2013US006559

PATIENT
  Age: 54 Year
  Sex: Male
  Weight: 72 kg

DRUGS (34)
  1. XTANDI [Suspect]
     Indication: PROSTATE CANCER
     Dosage: 160 MG, UID/QD
     Route: 048
     Dates: start: 20121107, end: 20130429
  2. EMERGEN C [Concomitant]
     Indication: IMMUNE ENHANCEMENT THERAPY
     Dosage: 1 PACKET 1-2 TIMES A DAY
     Route: 048
  3. OMEPRAZOLE [Concomitant]
     Indication: PRODUCT USED FOR UNKNOWN INDICATION
     Dosage: 20 MG, UID/QD
     Route: 048
  4. AMBIEN [Concomitant]
     Indication: INSOMNIA
     Dosage: 12.5 MG, PRN
     Route: 048
  5. MSIR [Concomitant]
     Indication: PAIN MANAGEMENT
     Dosage: 15 MG (X2 A DAY), PRN
     Route: 048
  6. HYDROCHLOROTHIAZIDE [Concomitant]
     Indication: PRODUCT USED FOR UNKNOWN INDICATION
     Dosage: 25 MG, QHS
     Route: 048
  7. MELATONIN [Concomitant]
     Indication: IMMUNE ENHANCEMENT THERAPY
     Dosage: 20 MG, QHS
     Route: 048
  8. MELATONIN [Concomitant]
     Indication: INSOMNIA
  9. VITAMIN D3 [Concomitant]
     Indication: IMMUNE ENHANCEMENT THERAPY
     Dosage: 2000 IU, UID/QD
     Route: 048
  10. VITAMIN D3 [Concomitant]
     Indication: SUPPORTIVE CARE
  11. GINGER                             /01646601/ [Concomitant]
     Indication: PROMOTION OF PERIPHERAL CIRCULATION
     Dosage: 1 DF, BID
     Route: 048
  12. VITAMIN B12                        /00056201/ [Concomitant]
     Indication: PROMOTION OF PERIPHERAL CIRCULATION
     Dosage: 4000 UG, UID/QD
     Route: 065
  13. PREDNISONE [Concomitant]
     Indication: PRODUCT USED FOR UNKNOWN INDICATION
     Dosage: 5 MG, BID
     Route: 048
  14. PREDNISONE [Concomitant]
     Dosage: 10 MG, UID/QD
     Route: 048
  15. COENZYME Q10 [Concomitant]
     Indication: CARDIOVASCULAR EVENT PROPHYLAXIS
     Dosage: 200 MG, UID/QD
     Route: 048
  16. COENZYME Q10 [Concomitant]
     Indication: SUPPORTIVE CARE
  17. ABIRATERONE [Concomitant]
     Indication: PROSTATE CANCER
     Dosage: 250 MG, BID
     Route: 048
  18. MAGNESIUM CITRATE [Concomitant]
     Indication: BOWEL MOVEMENT IRREGULARITY
     Dosage: 150 MG, BID
     Route: 048
  19. MAGNESIUM CITRATE [Concomitant]
     Indication: MUSCLE SPASMS
  20. THERAPEUTIC MULTIVITAMIN           /02278501/ [Concomitant]
     Indication: IMMUNE ENHANCEMENT THERAPY
     Dosage: 2 CAPS WITH MEALS
     Route: 048
  21. THERAPEUTIC MULTIVITAMIN           /02278501/ [Concomitant]
     Dosage: 1 SCOOP POWDER WITH FOOD, DAILY
  22. ATIVAN [Concomitant]
     Indication: PRODUCT USED FOR UNKNOWN INDICATION
     Dosage: 1 MG, UID/QD
     Route: 048
  23. FISH OIL [Concomitant]
     Indication: SUPPORTIVE CARE
     Dosage: 5 ML, UID/QD
     Route: 048
  24. FISH OIL [Concomitant]
     Indication: SUPPORTIVE CARE
  25. B COMPLETE                         /07485601/ [Concomitant]
     Indication: SUPPORTIVE CARE
     Dosage: 1 CAP
     Route: 048
  26. GREEN TEA EXTRACT                  /01578101/ [Concomitant]
     Indication: IMMUNE ENHANCEMENT THERAPY
     Dosage: 275 MG, TID
     Route: 048
  27. GREEN TEA EXTRACT                  /01578101/ [Concomitant]
     Indication: APOPTOSIS
  28. LANTUS [Concomitant]
     Indication: PRODUCT USED FOR UNKNOWN INDICATION
     Dosage: 16 U, QHS
     Route: 058
  29. WHEAT GERM [Concomitant]
     Indication: PRODUCT USED FOR UNKNOWN INDICATION
     Dosage: 1 PACKET DAILY
     Route: 065
  30. NOVOLOG [Concomitant]
     Indication: PRODUCT USED FOR UNKNOWN INDICATION
     Dosage: PER SLIDING SCALE
     Route: 058
  31. SIMVASTATIN [Concomitant]
     Indication: PRODUCT USED FOR UNKNOWN INDICATION
     Dosage: 20 MG, UID/QD
     Route: 048
  32. SENNA                              /00142201/ [Concomitant]
     Indication: CONSTIPATION
     Dosage: UNK
     Route: 065
  33. ASPIRIN [Concomitant]
     Indication: PRODUCT USED FOR UNKNOWN INDICATION
     Dosage: 81 MG, UID/QD
     Route: 048
  34. TAXOTERE [Concomitant]
     Indication: PROSTATE CANCER
     Dosage: UNK
     Route: 065

REACTIONS (8)
  - Blood calcium decreased [Unknown]
  - Acute myocardial infarction [Unknown]
  - Depression [Unknown]
  - Malignant neoplasm progression [Fatal]
  - Bone pain [Unknown]
  - Headache [Unknown]
  - Nausea [Unknown]
  - Respiratory tract infection [Unknown]
